FAERS Safety Report 8813913 (Version 2)
Quarter: 2014Q2

REPORT INFORMATION
  Report Type: Report from Study
  Country: US (occurrence: US)
  Receive Date: 20120928
  Receipt Date: 20140402
  Transmission Date: 20141212
  Serious: Yes (Death)
  Sender: FDA-Public Use
  Company Number: US-ROCHE-1127665

PATIENT
  Sex: Female

DRUGS (6)
  1. HERCEPTIN [Suspect]
     Indication: BREAST CANCER
     Route: 065
  2. HERCEPTIN [Suspect]
     Indication: LUNG NEOPLASM MALIGNANT
  3. TAXOL [Concomitant]
  4. ARANESP [Concomitant]
  5. ZOFRAN [Concomitant]
  6. TAGAMET [Concomitant]

REACTIONS (1)
  - Death [Fatal]
